FAERS Safety Report 25082429 (Version 4)
Quarter: 2025Q3

REPORT INFORMATION
  Report Type: Report from Study
  Country: US (occurrence: US)
  Receive Date: 20250317
  Receipt Date: 20250919
  Transmission Date: 20251021
  Serious: Yes (Other)
  Sender: TAKEDA
  Company Number: US-TAKEDA-2025TUS010187

PATIENT
  Age: 81 Year
  Sex: Male

DRUGS (4)
  1. TEDUGLUTIDE [Suspect]
     Active Substance: TEDUGLUTIDE
     Indication: Short-bowel syndrome
     Dosage: UNK UNK, QD
  2. TEDUGLUTIDE [Suspect]
     Active Substance: TEDUGLUTIDE
  3. TEDUGLUTIDE [Suspect]
     Active Substance: TEDUGLUTIDE
  4. TEDUGLUTIDE [Suspect]
     Active Substance: TEDUGLUTIDE

REACTIONS (7)
  - Neoplasm malignant [Unknown]
  - Product use issue [Unknown]
  - Insurance issue [Unknown]
  - Needle issue [Unknown]
  - Product dose omission issue [Unknown]
  - Weight decreased [Unknown]
  - Stoma complication [Unknown]

NARRATIVE: CASE EVENT DATE: 20250129
